FAERS Safety Report 8987325 (Version 3)
Quarter: 2013Q1

REPORT INFORMATION
  Report Type: Spontaneous
  Country: IN (occurrence: IN)
  Receive Date: 20121226
  Receipt Date: 20130211
  Transmission Date: 20140127
  Serious: Yes (Death, Other)
  Sender: FDA-Public Use
  Company Number: PHHY2012IN116301

PATIENT
  Age: 82 Year
  Sex: Male

DRUGS (1)
  1. GLIVEC [Suspect]
     Indication: CHRONIC MYELOID LEUKAEMIA
     Dosage: 400 MG, UNK
     Route: 048

REACTIONS (3)
  - Death [Fatal]
  - Neoplasm malignant [Unknown]
  - Second primary malignancy [Unknown]
